FAERS Safety Report 13325565 (Version 1)
Quarter: 2017Q1

REPORT INFORMATION
  Report Type: Spontaneous
  Country: US (occurrence: US)
  Receive Date: 20170310
  Receipt Date: 20170310
  Transmission Date: 20170428
  Serious: Yes (Life-Threatening, Hospitalization, Other)
  Sender: FDA-Public Use
  Company Number: US-JNJFOC-20170121883

PATIENT
  Age: 32 Year
  Sex: Female
  Weight: 65.77 kg

DRUGS (5)
  1. REMICADE [Suspect]
     Active Substance: INFLIXIMAB
     Indication: CROHN^S DISEASE
     Route: 042
     Dates: start: 2000, end: 2011
  2. SYNTHROID [Concomitant]
     Active Substance: LEVOTHYROXINE SODIUM
     Route: 065
  3. METHOTREXATE. [Concomitant]
     Active Substance: METHOTREXATE
     Route: 048
     Dates: start: 201112
  4. REMICADE [Suspect]
     Active Substance: INFLIXIMAB
     Indication: CROHN^S DISEASE
     Route: 042
     Dates: start: 20140417
  5. CALCIUM [Concomitant]
     Active Substance: CALCIUM
     Route: 065

REACTIONS (12)
  - Colectomy total [Unknown]
  - Cholecystectomy [Unknown]
  - Anal fistula [Unknown]
  - Colostomy [Unknown]
  - Colectomy [Unknown]
  - Drain placement [Unknown]
  - Urosepsis [Recovered/Resolved]
  - Ileostomy [Unknown]
  - Thyroidectomy [Unknown]
  - Depression [Unknown]
  - Psoriasis [Unknown]
  - Vitamin D deficiency [Unknown]

NARRATIVE: CASE EVENT DATE: 2000
